FAERS Safety Report 10228567 (Version 1)
Quarter: 2014Q2

REPORT INFORMATION
  Report Type: Spontaneous
  Country: DE (occurrence: DE)
  Receive Date: 20140610
  Receipt Date: 20140610
  Transmission Date: 20141212
  Serious: Yes (Other)
  Sender: FDA-Public Use
  Company Number: DE-ASTRAZENECA-2014SE38939

PATIENT
  Age: 30 Year
  Sex: Female
  Weight: 87 kg

DRUGS (5)
  1. SEROQUEL PROLONG [Suspect]
     Indication: BIPOLAR DISORDER
     Route: 048
     Dates: start: 20121213, end: 201306
  2. SEROQUEL PROLONG [Suspect]
     Indication: BIPOLAR DISORDER
     Route: 048
     Dates: start: 201306, end: 20131010
  3. SERTRALINE [Suspect]
     Indication: BIPOLAR DISORDER
     Route: 048
     Dates: start: 20130304, end: 20131010
  4. FEMIBION [Concomitant]
     Indication: PROPHYLAXIS OF NEURAL TUBE DEFECT
     Route: 048
     Dates: start: 20130115
  5. FEMIBION [Concomitant]
     Indication: PROPHYLAXIS OF NEURAL TUBE DEFECT
     Dosage: 0.4MG/DAILY FROM SECOND TRIMESTER
     Route: 048

REACTIONS (3)
  - Exposure during pregnancy [Unknown]
  - Glucose tolerance impaired in pregnancy [Recovered/Resolved]
  - Placental insufficiency [Recovered/Resolved]
